FAERS Safety Report 6699470-8 (Version None)
Quarter: 2010Q2

REPORT INFORMATION
  Report Type: 
  Country: None (occurrence: None)
  Receive Date: 20100423
  Receipt Date: 20100416
  Transmission Date: 20101027
  Serious: Yes (Hospitalization)
  Sender: FDA-Public Use
  Company Number: SPV1-2010-00735

PATIENT
  Age: 16 Year
  Sex: Male
  Weight: 63.9 kg

DRUGS (4)
  1. VYVANSE [Suspect]
     Indication: ATTENTION DEFICIT/HYPERACTIVITY DISORDER
     Dosage: 20 MG, 1XLDAY:QD, ORAL; 40 MG, 1X/DAY:QD, ORAL; 60 MG, 1X/DAY:QD, ORAL
     Route: 048
     Dates: start: 20090101, end: 20090101
  2. VYVANSE [Suspect]
     Indication: ATTENTION DEFICIT/HYPERACTIVITY DISORDER
     Dosage: 20 MG, 1XLDAY:QD, ORAL; 40 MG, 1X/DAY:QD, ORAL; 60 MG, 1X/DAY:QD, ORAL
     Route: 048
     Dates: start: 20090101, end: 20090101
  3. VYVANSE [Suspect]
     Indication: ATTENTION DEFICIT/HYPERACTIVITY DISORDER
     Dosage: 20 MG, 1XLDAY:QD, ORAL; 40 MG, 1X/DAY:QD, ORAL; 60 MG, 1X/DAY:QD, ORAL
     Route: 048
     Dates: start: 20090101, end: 20091218
  4. PROZAC     	/00724401/ (FLUOXETINE) [Concomitant]

REACTIONS (7)
  - CONVULSION [None]
  - FALL [None]
  - HEAD INJURY [None]
  - HEADACHE [None]
  - OFF LABEL USE [None]
  - RASH [None]
  - STAPHYLOCOCCAL INFECTION [None]
